FAERS Safety Report 7340924-9 (Version None)
Quarter: 2011Q1

REPORT INFORMATION
  Report Type: 
  Country: None (occurrence: None)
  Receive Date: 20110309
  Receipt Date: 20100804
  Transmission Date: 20110831
  Serious: No
  Sender: FDA-Public Use
  Company Number: US-ABBOTT-10P-163-0662154-00

PATIENT
  Sex: Female
  Weight: 99.426 kg

DRUGS (5)
  1. LUPRON DEPOT [Suspect]
     Indication: ENDOMETRIOSIS
     Dosage: 1 MONTH DOSE
     Dates: start: 20100607
  2. LUPRON DEPOT [Suspect]
     Indication: ANAEMIA
  3. CYMBALTA [Concomitant]
     Indication: DEPRESSION
  4. CYMBALTA [Concomitant]
     Indication: ANXIETY
  5. LUPRON DEPOT [Suspect]
     Indication: IRON DEFICIENCY

REACTIONS (4)
  - MUSCLE SPASMS [None]
  - PAIN [None]
  - NEPHROLITHIASIS [None]
  - MENSTRUATION IRREGULAR [None]
